FAERS Safety Report 8514046-5 (Version None)
Quarter: 2012Q3

REPORT INFORMATION
  Report Type: 
  Country: None (occurrence: None)
  Receive Date: 20120717
  Receipt Date: 20120705
  Transmission Date: 20120928
  Serious: No
  Sender: FDA-Public Use
  Company Number: US-BAYER-2012-068388

PATIENT
  Age: 20 Year
  Sex: Female
  Weight: 47.619 kg

DRUGS (2)
  1. ALEVE (CAPLET) [Suspect]
     Indication: HEADACHE
     Dosage: 2 DF, PRN
     Route: 048
     Dates: start: 20120702
  2. ALEVE (CAPLET) [Suspect]
     Indication: PAIN IN EXTREMITY
     Dosage: 4 DF, ONCE
     Route: 048
     Dates: start: 20120705, end: 20120705

REACTIONS (2)
  - FEELING ABNORMAL [None]
  - DIZZINESS [None]
